FAERS Safety Report 4730100-8 (Version None)
Quarter: 2005Q3

REPORT INFORMATION
  Report Type: 
  Country: None (occurrence: None)
  Receive Date: 20050801
  Receipt Date: 20050727
  Transmission Date: 20060218
  Serious: Yes (Other)
  Sender: FDA-Public Use
  Company Number: 200511659DE

PATIENT
  Age: 22 Year
  Sex: Female

DRUGS (2)
  1. CLEXANE [Suspect]
     Indication: PULMONARY EMBOLISM
     Route: 058
     Dates: start: 20050308
  2. MARCUMAR [Concomitant]
     Indication: PULMONARY EMBOLISM
     Route: 048
     Dates: start: 20030101, end: 20050301

REACTIONS (2)
  - ABORTION MISSED [None]
  - DRUG EXPOSURE DURING PREGNANCY [None]
